FAERS Safety Report 9914720 (Version 1)
Quarter: 2014Q1

REPORT INFORMATION
  Report Type: Spontaneous
  Country: GB (occurrence: GB)
  Receive Date: 20140220
  Receipt Date: 20140220
  Transmission Date: 20141002
  Serious: Yes (Hospitalization)
  Sender: FDA-Public Use
  Company Number: GB-PFIZER INC-2014045640

PATIENT
  Age: 70 Year
  Sex: Male

DRUGS (1)
  1. ZYVOX [Suspect]
     Dosage: 600 MG, UNK
     Route: 048

REACTIONS (3)
  - Acidosis [Recovered/Resolved]
  - Renal failure acute [Recovered/Resolved]
  - Off label use [Unknown]
